FAERS Safety Report 18645453 (Version 2)
Quarter: 2021Q1

REPORT INFORMATION
  Report Type: Spontaneous
  Country: US (occurrence: US)
  Receive Date: 20201221
  Receipt Date: 20210201
  Transmission Date: 20210419
  Serious: Yes (Other)
  Sender: FDA-Public Use
  Company Number: US-ASTRAZENECA-2020SF70122

PATIENT
  Age: 68 Year
  Sex: Female
  Weight: 67.6 kg

DRUGS (18)
  1. DELTASONE [Concomitant]
     Active Substance: PREDNISONE
     Dosage: 1 TABLET (20 MG TOTAL) BY MOUTH DAILY FOR 7 DAYS
     Route: 048
  2. CHOLECALCIFEROL [Concomitant]
     Active Substance: CHOLECALCIFEROL
     Dosage: 1,000 UNITS BY MOUTH DAILY
     Route: 048
  3. KAY CIEL [Concomitant]
     Active Substance: POTASSIUM CHLORIDE
     Dosage: 20 MEQ/15 ML SOLUTION; 15 MLS (20 MEQ TOTAL) BY MOUTH 2 (TWO) TIMES DAILY
     Route: 048
  4. ADVIL [Concomitant]
     Active Substance: IBUPROFEN
     Dosage: 600 MG BY MOUTH600.0MG UNKNOWN
     Route: 048
  5. IMODIUM [Concomitant]
     Active Substance: LOPERAMIDE HYDROCHLORIDE
     Indication: DIARRHOEA
     Dosage: 1 CAPSULE (2 MG TOTAL) BY MOUTH 4 (FOUR) TIMES DAILY AS NEEDED
     Route: 061
  6. MOTRIN [Concomitant]
     Active Substance: IBUPROFEN
     Dosage: 600 MG BY MOUTH600.0MG UNKNOWN
     Route: 048
  7. TOPROL XL [Concomitant]
     Active Substance: METOPROLOL SUCCINATE
     Dosage: 24 HR TABLET; 100 MG BY MOUTH DAILY
     Route: 048
  8. ASPIRIN. [Concomitant]
     Active Substance: ASPIRIN
     Dosage: 81 MG BY MOUTH DAILY
     Route: 048
  9. DEXTROMETHORPHAN (+) GUAIFENESIN [Concomitant]
     Active Substance: DEXTROMETHORPHAN\GUAIFENESIN
     Dosage: 3 L/MIN BY MISCELLANEOUS ROUTE CONTINUOUS OXYGEN
  10. PYRIDOXINE [Concomitant]
     Active Substance: PYRIDOXINE
     Dosage: 1 TABLET (100 MG TOTAL) BY MOUTH DAILY
     Route: 048
  11. ZYLOPRIM [Concomitant]
     Active Substance: ALLOPURINOL
     Dosage: 1 TABLET (100 MG TOTAL) BY MOUTH DAILY
     Route: 048
  12. EMLA [Concomitant]
     Active Substance: LIDOCAINE\PRILOCAINE
     Dosage: 1 EACH TOPICALLY
     Route: 061
  13. XANTHOPHYLL [Concomitant]
     Dosage: 1 CAPSULE (20 MG TOTAL) BY MOUTH DAILY
     Route: 048
  14. ZOFRAN [Concomitant]
     Active Substance: ONDANSETRON HYDROCHLORIDE
     Indication: NAUSEA
     Dosage: TABLET (8 MG TOTAL) BY MOUTH EVERY 8 (EIGHT) HOURS AS NEEDED
     Route: 048
  15. LYNPARZA [Suspect]
     Active Substance: OLAPARIB
     Indication: OVARIAN CANCER
     Dosage: 2 TABLETS (200 MG TOTAL) BY MOUTH 2 (TWO) TIMES A DAY
     Route: 048
     Dates: start: 202009, end: 20201211
  16. LIPITOR [Concomitant]
     Active Substance: ATORVASTATIN CALCIUM
     Dosage: 1 TABLET (80 MG) BY MOUTH EVERY NIGHT
     Route: 048
  17. TUMS [Concomitant]
     Active Substance: CALCIUM CARBONATE
     Dosage: 200 MG CALCIUM (500 MG); 1 TABLET (500 MG TOTAL) BY MOUTH DAILY
     Route: 048
  18. PROTONIX [Concomitant]
     Active Substance: PANTOPRAZOLE SODIUM
     Dosage: 1 TABLET (40 MG TOTAL) BY MOUTH DAILY
     Route: 048

REACTIONS (2)
  - Aplasia pure red cell [Recovered/Resolved]
  - Bone marrow failure [Unknown]
